FAERS Safety Report 8283163-X (Version None)
Quarter: 2012Q2

REPORT INFORMATION
  Report Type: 
  Country: None (occurrence: None)
  Receive Date: 20120413
  Receipt Date: 20120402
  Transmission Date: 20120825
  Serious: Yes (Congenital Anomaly, Other)
  Sender: FDA-Public Use
  Company Number: DE-GLAXOSMITHKLINE-D0075098A

PATIENT
  Sex: Male

DRUGS (3)
  1. FOLSAN [Concomitant]
     Indication: PROPHYLAXIS OF NEURAL TUBE DEFECT
     Dosage: 5MG PER DAY
     Route: 064
     Dates: start: 20090630, end: 20100324
  2. OXCARBAZEPINE [Suspect]
     Indication: EPILEPSY
     Dosage: 2100MG PER DAY
     Route: 064
     Dates: start: 20090630, end: 20100411
  3. LAMICTAL [Suspect]
     Indication: EPILEPSY
     Dosage: 300MG TWICE PER DAY
     Route: 064
     Dates: start: 20090630, end: 20100411

REACTIONS (3)
  - ATRIAL SEPTAL DEFECT [None]
  - CONGENITAL PULMONARY HYPERTENSION [None]
  - VENTRICULAR SEPTAL DEFECT [None]
